FAERS Safety Report 5764176-6 (Version None)
Quarter: 2008Q2

REPORT INFORMATION
  Report Type: 
  Country: None (occurrence: None)
  Receive Date: 20080605
  Receipt Date: 20080519
  Transmission Date: 20081010
  Serious: Yes (Hospitalization)
  Sender: FDA-Public Use
  Company Number: 1-16164025

PATIENT
  Sex: Female

DRUGS (1)
  1. SOLODYN [Suspect]
     Dosage: ORALLY
     Route: 048
     Dates: start: 20080425

REACTIONS (2)
  - MENINGITIS [None]
  - VOMITING [None]
